FAERS Safety Report 8454434 (Version 2)
Quarter: 2013Q1

REPORT INFORMATION
  Report Type: Spontaneous
  Country: None (occurrence: US)
  Receive Date: 20120312
  Receipt Date: 20130129
  Transmission Date: 20140127
  Serious: Yes (Life-Threatening, Hospitalization, Disabling)
  Sender: FDA-Public Use
  Company Number: US-BAXTER-2012BH006173

PATIENT
  Sex: Female
  Weight: 65.83 kg

DRUGS (1)
  1. CYTOXAN_CYCLOPHOSPHAMIDE, MONOHYDRATE 2.00 G_POWDER FOR SOLUTION FOR I [Suspect]
     Indication: CHRONIC LYMPHOCYTIC LEUKAEMIA
     Route: 042
     Dates: start: 20111109, end: 20120111

REACTIONS (3)
  - Organising pneumonia [Unknown]
  - Urinary tract infection [Unknown]
  - Atrial fibrillation [Recovered/Resolved]
